FAERS Safety Report 24578987 (Version 1)
Quarter: 2024Q4

REPORT INFORMATION
  Report Type: Spontaneous
  Country: US (occurrence: US)
  Receive Date: 20241105
  Receipt Date: 20241105
  Transmission Date: 20250115
  Serious: Yes (Life-Threatening, Hospitalization)
  Sender: EPIC PHARM
  Company Number: US-EPICPHARMA-US-2024EPCLIT01322

PATIENT
  Age: 79 Year
  Sex: Male

DRUGS (4)
  1. ALBUTEROL SULFATE [Suspect]
     Active Substance: ALBUTEROL SULFATE
     Indication: Chronic obstructive pulmonary disease
     Route: 065
  2. IPRATROPIUM [Suspect]
     Active Substance: IPRATROPIUM
     Indication: Chronic obstructive pulmonary disease
     Route: 065
  3. SOLU-MEDROL [Concomitant]
     Active Substance: METHYLPREDNISOLONE SODIUM SUCCINATE
     Indication: Product used for unknown indication
     Route: 042
  4. CISATRACURIUM [Concomitant]
     Active Substance: CISATRACURIUM
     Indication: Product used for unknown indication
     Route: 065

REACTIONS (2)
  - Bronchospasm paradoxical [Recovered/Resolved]
  - Product use in unapproved indication [Unknown]
